FAERS Safety Report 6044836-2 (Version None)
Quarter: 2009Q1

REPORT INFORMATION
  Report Type: 
  Country: None (occurrence: None)
  Receive Date: 20090121
  Receipt Date: 20090113
  Transmission Date: 20090719
  Serious: Yes (Hospitalization)
  Sender: FDA-Public Use
  Company Number: DE-RANBAXY-2009RR-20551

PATIENT
  Age: 77 Year
  Sex: Female

DRUGS (9)
  1. IBUPROFEN TABLETS [Suspect]
     Indication: ARTHRALGIA
     Dosage: 400 MG, BID
     Route: 048
     Dates: end: 20080630
  2. ACETYLSALICYLIC ACID SRT [Suspect]
     Indication: CEREBROVASCULAR ACCIDENT
     Dosage: 100 MG, QD
     Route: 048
     Dates: start: 20050101, end: 20080626
  3. ALLOPURINOL [Concomitant]
     Indication: HYPERURICAEMIA
     Dosage: 300 MG, QD
     Route: 048
  4. CALCILAC KT [Concomitant]
     Indication: OSTEOPOROSIS
     Dosage: 500 DF, BID
     Route: 048
  5. CITALOPRAM HYDROBROMIDE [Concomitant]
     Indication: DEPRESSION
     Dosage: 20 MG, QD
     Route: 048
  6. DIURAPID [Concomitant]
     Indication: HYPERTENSION
     Dosage: 20 MG, QD
     Route: 048
  7. LEVODOPA [Concomitant]
     Indication: PARKINSON'S DISEASE
     Dosage: 50 MG, QD
     Route: 048
  8. LEVODOPA [Concomitant]
     Dosage: 100 MG, BID
     Route: 048
  9. VOTUM [Concomitant]
     Indication: HYPERTENSION
     Dosage: 20 MG, QD
     Route: 048

REACTIONS (1)
  - GASTRITIS EROSIVE [None]
